FAERS Safety Report 7468121-7 (Version None)
Quarter: 2011Q2

REPORT INFORMATION
  Report Type: 
  Country: None (occurrence: None)
  Receive Date: 20110509
  Receipt Date: 20110503
  Transmission Date: 20111010
  Serious: Yes (Death)
  Sender: FDA-Public Use
  Company Number: IT-ELI_LILLY_AND_COMPANY-IT201104007998

PATIENT
  Age: 50 Year
  Sex: Male

DRUGS (2)
  1. LANTUS [Concomitant]
  2. HUMALOG [Suspect]

REACTIONS (1)
  - DEATH [None]
